FAERS Safety Report 9330849 (Version 2)
Quarter: 2013Q3

REPORT INFORMATION
  Report Type: Spontaneous
  Country: BR (occurrence: BR)
  Receive Date: 20130605
  Receipt Date: 20130813
  Transmission Date: 20140515
  Serious: Yes (Other)
  Sender: FDA-Public Use
  Company Number: BR-AMGEN-BRASP2013039346

PATIENT
  Age: 47 Year
  Sex: Female
  Weight: 145.99 kg

DRUGS (9)
  1. ENBREL [Suspect]
     Indication: PSORIATIC ARTHROPATHY
     Dosage: 50 MG, 1X/WEEK
     Route: 065
     Dates: start: 201305, end: 201305
  2. ENBREL [Suspect]
     Dosage: 50 MG, WEEKLY
     Route: 058
     Dates: start: 201304
  3. METHOTREXATE [Concomitant]
     Indication: ARTHRITIS
     Dosage: 10 TABLETS OF 25MG WEEKLY
  4. METFORMIN [Concomitant]
     Indication: DIABETES MELLITUS
     Dosage: 4 TABLETS OF 500MG DAILY
  5. GLIBENCLAMIDE [Concomitant]
     Indication: DIABETES MELLITUS
     Dosage: 1 TABLET OF 5 MG DAILY
  6. CAPTOPRIL [Concomitant]
     Indication: HYPERTENSION
     Dosage: 4 TABLETS OF 25MG DAILY
  7. HYDROCHLOROTHIAZIDE [Concomitant]
     Indication: HYPERTENSION
     Dosage: 1 TABLET OF 25 MG DAILY
  8. LEVOTHYROXINE [Concomitant]
     Indication: HYPERTHYROIDISM
     Dosage: 75 MG, QD
  9. OMEPRAZOLE [Concomitant]
     Dosage: 20 MG, QD

REACTIONS (6)
  - Eyelid disorder [Unknown]
  - Infective glossitis [Not Recovered/Not Resolved]
  - Inflammation [Unknown]
  - Abscess limb [Not Recovered/Not Resolved]
  - Localised infection [Not Recovered/Not Resolved]
  - Psoriasis [Unknown]
